FAERS Safety Report 8340352-3 (Version None)
Quarter: 2012Q2

REPORT INFORMATION
  Report Type: 
  Country: None (occurrence: None)
  Receive Date: 20120507
  Receipt Date: 20120426
  Transmission Date: 20120825
  Serious: Yes (Hospitalization, Other)
  Sender: FDA-Public Use
  Company Number: US-JNJFOC-20120412557

PATIENT
  Sex: Female
  Weight: 86.18 kg

DRUGS (6)
  1. MOBIC [Concomitant]
     Indication: RHEUMATOID ARTHRITIS
     Route: 048
     Dates: start: 20070101
  2. LANTUS [Concomitant]
     Dosage: IN A.M
     Route: 058
     Dates: start: 20070101
  3. IMURAN [Concomitant]
     Indication: RHEUMATOID ARTHRITIS
     Route: 048
     Dates: start: 20070101
  4. BYETTA [Concomitant]
     Indication: DIABETES MELLITUS
     Route: 058
     Dates: start: 20070101
  5. REMICADE [Suspect]
     Indication: RHEUMATOID ARTHRITIS
     Route: 042
     Dates: start: 20080101, end: 20111001
  6. LANTUS [Concomitant]
     Indication: DIABETES MELLITUS
     Dosage: IN P.M
     Route: 058
     Dates: start: 20070101

REACTIONS (4)
  - INTERVERTEBRAL DISC PROTRUSION [None]
  - SENSATION OF PRESSURE [None]
  - PAIN [None]
  - ABASIA [None]
